FAERS Safety Report 11416334 (Version 1)
Quarter: 2015Q3

REPORT INFORMATION
  Report Type: Spontaneous
  Country: US (occurrence: US)
  Receive Date: 20150825
  Receipt Date: 20150825
  Transmission Date: 20151125
  Serious: No
  Sender: FDA-Public Use
  Company Number: US-PFIZER INC-2015279249

PATIENT
  Age: 65 Year
  Sex: Male
  Weight: 88 kg

DRUGS (2)
  1. SERTRALINE HCL [Suspect]
     Active Substance: SERTRALINE HYDROCHLORIDE
     Indication: FEELING OF RELAXATION
     Dosage: UNK, 1X/DAY, (100 MG TABLET AND SPILLING THEM IN HALF TO TAKE 50 MG A DAY)
  2. SERTRALINE HCL [Suspect]
     Active Substance: SERTRALINE HYDROCHLORIDE
     Indication: AFFECTIVE DISORDER

REACTIONS (3)
  - Muscle spasms [Unknown]
  - Blood glucose decreased [Unknown]
  - Abdominal discomfort [Unknown]
